FAERS Safety Report 13028712 (Version 1)
Quarter: 2016Q4

REPORT INFORMATION
  Report Type: Spontaneous
  Country: FR (occurrence: FR)
  Receive Date: 20161214
  Receipt Date: 20161214
  Transmission Date: 20170207
  Serious: Yes (Hospitalization)
  Sender: FDA-Public Use
  Company Number: FR-ASTRAZENECA-2016SF30781

PATIENT
  Age: 83 Year
  Sex: Female

DRUGS (14)
  1. MESTINON [Suspect]
     Active Substance: PYRIDOSTIGMINE BROMIDE
     Route: 065
     Dates: end: 20120419
  2. XEROQUEL [Suspect]
     Active Substance: QUETIAPINE FUMARATE
     Route: 048
     Dates: end: 20120419
  3. PARKINANE [Suspect]
     Active Substance: TRIHEXYPHENIDYL HYDROCHLORIDE
     Route: 048
     Dates: end: 20120419
  4. TERCIAN [Concomitant]
     Active Substance: CYAMEMAZINE
     Dosage: AS REQUIRED
  5. LOVENOX [Concomitant]
     Active Substance: ENOXAPARIN SODIUM
  6. XEROQUEL [Suspect]
     Active Substance: QUETIAPINE FUMARATE
     Route: 048
     Dates: end: 20120419
  7. LAROXYL [Concomitant]
     Active Substance: AMITRIPTYLINE
  8. TARDYFERON [Suspect]
     Active Substance: FERROUS SULFATE
     Route: 048
     Dates: end: 20120419
  9. LEVOTHYROX [Concomitant]
     Active Substance: LEVOTHYROXINE
  10. INEXIUM [Concomitant]
     Active Substance: ESOMEPRAZOLE
  11. ALPRAZOLAM. [Concomitant]
     Active Substance: ALPRAZOLAM
  12. XALATAN [Concomitant]
     Active Substance: LATANOPROST
  13. HYTACAND [Suspect]
     Active Substance: CANDESARTAN CILEXETIL\HYDROCHLOROTHIAZIDE
     Route: 048
     Dates: end: 20120419
  14. FORLAX [Concomitant]
     Active Substance: POLYETHYLENE GLYCOL 4000

REACTIONS (3)
  - Rhabdomyolysis [Recovered/Resolved]
  - Urinary retention [Recovered/Resolved with Sequelae]
  - Acute kidney injury [Recovered/Resolved]

NARRATIVE: CASE EVENT DATE: 20120419
